FAERS Safety Report 7888549-0 (Version None)
Quarter: 2011Q4

REPORT INFORMATION
  Report Type: 
  Country: None (occurrence: None)
  Receive Date: 20111103
  Receipt Date: 20111101
  Transmission Date: 20120403
  Serious: Yes (Life-Threatening)
  Sender: FDA-Public Use
  Company Number: PHHY2011CA70399

PATIENT
  Sex: Female

DRUGS (1)
  1. ZOLEDRONOC ACID [Suspect]
     Indication: OSTEOPOROSIS
     Route: 042
     Dates: start: 20101021

REACTIONS (6)
  - PAIN [None]
  - BACK PAIN [None]
  - DRUG INEFFECTIVE [None]
  - TERMINAL STATE [None]
  - SPINAL X-RAY ABNORMAL [None]
  - INFLUENZA LIKE ILLNESS [None]
